FAERS Safety Report 5663962-0 (Version None)
Quarter: 2008Q1

REPORT INFORMATION
  Report Type: 
  Country: None (occurrence: None)
  Receive Date: 20080314
  Receipt Date: 20080303
  Transmission Date: 20080703
  Serious: Yes (Hospitalization)
  Sender: FDA-Public Use
  Company Number: FR-JNJFOC-20080303015

PATIENT
  Age: 87 Year
  Sex: Female

DRUGS (8)
  1. TOPALGIC [Suspect]
     Indication: DRUG USE FOR UNKNOWN INDICATION
     Route: 048
  2. PREVISCAN [Interacting]
     Indication: DEEP VEIN THROMBOSIS
     Route: 048
  3. LASILIX [Concomitant]
     Route: 065
  4. LOVENOX [Concomitant]
     Route: 065
  5. ATACAND [Concomitant]
     Route: 065
  6. TEMERIT [Concomitant]
     Route: 065
  7. HEPARINE BIOSEDRA [Concomitant]
     Route: 065
  8. CARDENSIEL [Concomitant]
     Route: 065

REACTIONS (3)
  - ANAEMIA [None]
  - DRUG INTERACTION [None]
  - INTERNATIONAL NORMALISED RATIO INCREASED [None]
